FAERS Safety Report 20018567 (Version 2)
Quarter: 2021Q4

REPORT INFORMATION
  Report Type: Spontaneous
  Country: US (occurrence: US)
  Receive Date: 20211101
  Receipt Date: 20211124
  Transmission Date: 20220304
  Serious: Yes (Life-Threatening, Hospitalization, Other)
  Sender: FDA-Public Use
  Company Number: US-drreddys-SPO/USA/21/0143022

PATIENT
  Age: 44 Year
  Sex: Male

DRUGS (4)
  1. CLOPIDOGREL BISULFATE [Suspect]
     Active Substance: CLOPIDOGREL BISULFATE
     Indication: Basilar artery occlusion
  2. CLOPIDOGREL BISULFATE [Suspect]
     Active Substance: CLOPIDOGREL BISULFATE
     Indication: Vertebral artery occlusion
  3. ASPIRIN [Suspect]
     Active Substance: ASPIRIN
     Indication: Vertebral artery occlusion
  4. ASPIRIN [Suspect]
     Active Substance: ASPIRIN
     Indication: Basilar artery occlusion

REACTIONS (7)
  - Subcapsular renal haematoma [Recovering/Resolving]
  - Haemoglobin decreased [Recovering/Resolving]
  - Acute kidney injury [Recovered/Resolved]
  - Page kidney [Recovered/Resolved]
  - Hypertension [Recovering/Resolving]
  - Renal haemorrhage [Recovering/Resolving]
  - Renal impairment [Recovering/Resolving]
